FAERS Safety Report 14268008 (Version 1)
Quarter: 2017Q4

REPORT INFORMATION
  Report Type: Spontaneous
  Country: US (occurrence: None)
  Receive Date: 20171211
  Receipt Date: 20171211
  Transmission Date: 20180321
  Serious: Yes (Life-Threatening, Hospitalization)
  Sender: FDA-Public Use
  Company Number: None

PATIENT
  Age: 20 Month
  Sex: Female

DRUGS (1)
  1. SUBOXONE [Suspect]
     Active Substance: BUPRENORPHINE HYDROCHLORIDE\NALOXONE HYDROCHLORIDE
     Indication: ACCIDENTAL EXPOSURE TO PRODUCT
     Dosage: UNKNOWN - NO WITNESSED EXPOSURE?ORAL/BUCCAL
     Route: 048
     Dates: start: 20170923

REACTIONS (4)
  - Lethargy [None]
  - Somnolence [None]
  - Vomiting [None]
  - Accidental exposure to product by child [None]

NARRATIVE: CASE EVENT DATE: 20170923
